FAERS Safety Report 22136049 (Version 1)
Quarter: 2023Q1

REPORT INFORMATION
  Report Type: Spontaneous
  Country: ES (occurrence: ES)
  Receive Date: 20230324
  Receipt Date: 20230324
  Transmission Date: 20230418
  Serious: Yes (Hospitalization)
  Sender: FDA-Public Use
  Company Number: None

PATIENT
  Age: 48 Year
  Sex: Female

DRUGS (2)
  1. ZOLPIDEM [Interacting]
     Active Substance: ZOLPIDEM TARTRATE
     Indication: Suicide attempt
     Dosage: 40 MG (1 TOTAL)
     Route: 048
     Dates: start: 20230209, end: 20230209
  2. CLOZAPINE [Interacting]
     Active Substance: CLOZAPINE
     Indication: Suicide attempt
     Dosage: 250 MG (1 TOTAL)
     Route: 048
     Dates: start: 20230209, end: 20230209

REACTIONS (2)
  - Depressed level of consciousness [Recovered/Resolved]
  - Intentional overdose [Recovered/Resolved]

NARRATIVE: CASE EVENT DATE: 20230209
